FAERS Safety Report 4745570-9 (Version None)
Quarter: 2005Q3

REPORT INFORMATION
  Report Type: 
  Country: None (occurrence: None)
  Receive Date: 20050815
  Receipt Date: 20050802
  Transmission Date: 20060218
  Serious: Yes (Hospitalization, Other)
  Sender: FDA-Public Use
  Company Number: 200511044BWH

PATIENT
  Age: 54 Year
  Sex: Female
  Weight: 67.1324 kg

DRUGS (9)
  1. AVELOX [Suspect]
     Indication: ASTHMA
     Dosage: 400 MG, QD, ORAL
     Route: 048
     Dates: start: 20030905, end: 20030907
  2. NEXIUM [Concomitant]
  3. PREVACID [Concomitant]
  4. PREMARINA [Concomitant]
  5. ALBUTEROL [Concomitant]
  6. ALBUTEROL [Concomitant]
  7. PROTONIX [Concomitant]
  8. VICOPROFEN [Concomitant]
  9. XANAX [Concomitant]

REACTIONS (38)
  - ANAPHYLACTIC REACTION [None]
  - ANXIETY [None]
  - ASTHMA [None]
  - ATRIOVENTRICULAR BLOCK FIRST DEGREE [None]
  - BRONCHOSPASM [None]
  - CHEST PAIN [None]
  - CONDITION AGGRAVATED [None]
  - CONVULSION [None]
  - CYANOSIS [None]
  - DRUG HYPERSENSITIVITY [None]
  - DYSPHAGIA [None]
  - DYSPNOEA [None]
  - DYSPNOEA EXERTIONAL [None]
  - EYE PRURITUS [None]
  - EYE SWELLING [None]
  - FLUSHING [None]
  - HEART RATE INCREASED [None]
  - INSOMNIA [None]
  - MITRAL VALVE PROLAPSE [None]
  - MUSCLE TWITCHING [None]
  - NAUSEA [None]
  - NERVOUSNESS [None]
  - NUCLEAR MAGNETIC RESONANCE IMAGING BRAIN ABNORMAL [None]
  - OCULAR HYPERAEMIA [None]
  - OXYGEN SATURATION DECREASED [None]
  - PALPITATIONS [None]
  - PANIC ATTACK [None]
  - PULMONARY VALVE INCOMPETENCE [None]
  - RESPIRATORY RATE INCREASED [None]
  - RESTLESSNESS [None]
  - SPEECH DISORDER [None]
  - SPINAL COLUMN STENOSIS [None]
  - SWELLING FACE [None]
  - THROAT TIGHTNESS [None]
  - TREMOR [None]
  - TRICUSPID VALVE INCOMPETENCE [None]
  - URTICARIA [None]
  - VOMITING [None]
